FAERS Safety Report 21414974 (Version 1)
Quarter: 2022Q4

REPORT INFORMATION
  Report Type: Spontaneous
  Country: US (occurrence: US)
  Receive Date: 20221006
  Receipt Date: 20221006
  Transmission Date: 20230112
  Serious: Yes (Hospitalization, Other)
  Sender: FDA-Public Use
  Company Number: US-APOTEX-2022AP014083

PATIENT
  Age: 56 Year
  Sex: Male

DRUGS (1)
  1. ENOXAPARIN [Suspect]
     Active Substance: ENOXAPARIN
     Indication: Thrombosis prophylaxis
     Dosage: UNK
     Route: 065

REACTIONS (1)
  - Heparin-induced thrombocytopenia [Unknown]
